FAERS Safety Report 25219684 (Version 1)
Quarter: 2025Q2

REPORT INFORMATION
  Report Type: Spontaneous
  Country: FR (occurrence: FR)
  Receive Date: 20250421
  Receipt Date: 20250421
  Transmission Date: 20250717
  Serious: Yes (Hospitalization)
  Sender: SANOFI AVENTIS
  Company Number: None

PATIENT
  Age: 95 Year
  Sex: Male
  Weight: 67 kg

DRUGS (2)
  1. ISONIAZID\RIFAMPIN [Suspect]
     Active Substance: ISONIAZID\RIFAMPIN
     Indication: Tuberculosis
     Dosage: ISONIAZID 150 + RIFAMPICIN 300 X6 DAILY
     Route: 048
     Dates: start: 20250314, end: 20250317
  2. RIFATER [Suspect]
     Active Substance: ISONIAZID\PYRAZINAMIDE\RIFAMPIN
     Indication: Tuberculosis
     Dosage: ISONIAZID 50+ RIFAMPICIN 120 + PYRAZINAMIDE 300X6 DAILY
     Route: 048
     Dates: start: 20250314, end: 20250317

REACTIONS (4)
  - Somnolence [Recovered/Resolved]
  - Fall [Recovered/Resolved]
  - Product name confusion [Recovered/Resolved]
  - Incorrect dose administered [Recovered/Resolved]

NARRATIVE: CASE EVENT DATE: 20250317
